FAERS Safety Report 8187494-3 (Version None)
Quarter: 2012Q1

REPORT INFORMATION
  Report Type: 
  Country: None (occurrence: None)
  Receive Date: 20120217
  Receipt Date: 20110520
  Transmission Date: 20120608
  Serious: Yes (Other)
  Sender: FDA-Public Use
  Company Number: AUR-APL-2011-01775

PATIENT
  Sex: Male
  Weight: 102.0593 kg

DRUGS (1)
  1. SIMVASTATIN [Suspect]
     Indication: BLOOD CHOLESTEROL INCREASED
     Dosage: (20 MG, 1 D), ORAL
     Route: 048
     Dates: start: 20110201, end: 20110413

REACTIONS (2)
  - MUSCULOSKELETAL DISCOMFORT [None]
  - CONDITION AGGRAVATED [None]
